FAERS Safety Report 24206615 (Version 3)
Quarter: 2024Q4

REPORT INFORMATION
  Report Type: Spontaneous
  Country: CA (occurrence: CA)
  Receive Date: 20240813
  Receipt Date: 20241014
  Transmission Date: 20250115
  Serious: Yes (Life-Threatening, Hospitalization, Disabling, Other)
  Sender: BRISTOL-MYERS SQUIBB COMPANY
  Company Number: CA-BRISTOL-MYERS SQUIBB COMPANY-2024-122417

PATIENT
  Age: 44 Year
  Sex: Female
  Weight: 70 kg

DRUGS (266)
  1. ORENCIA [Suspect]
     Active Substance: ABATACEPT
     Indication: Rheumatoid arthritis
  2. ORENCIA [Suspect]
     Active Substance: ABATACEPT
     Indication: Psoriatic arthropathy
  3. ORENCIA [Suspect]
     Active Substance: ABATACEPT
  4. ORENCIA [Suspect]
     Active Substance: ABATACEPT
  5. ACETAMINOPHEN [Concomitant]
     Active Substance: ACETAMINOPHEN
     Indication: Rheumatoid arthritis
  6. ACETAMINOPHEN [Concomitant]
     Active Substance: ACETAMINOPHEN
  7. ACETAMINOPHEN\CAFFEINE\CODEINE PHOSPHATE [Concomitant]
     Active Substance: ACETAMINOPHEN\CAFFEINE\CODEINE PHOSPHATE
  8. ACETAMINOPHEN AND CODEINE [Concomitant]
     Active Substance: ACETAMINOPHEN\CODEINE PHOSPHATE
  9. OXYCODONE AND ACETAMINOPHEN [Concomitant]
     Active Substance: ACETAMINOPHEN\OXYCODONE HYDROCHLORIDE
     Indication: Product used for unknown indication
  10. ACTEMRA [Concomitant]
     Active Substance: TOCILIZUMAB
     Indication: Rheumatoid arthritis
  11. ACTEMRA [Concomitant]
     Active Substance: TOCILIZUMAB
  12. ACTEMRA [Concomitant]
     Active Substance: TOCILIZUMAB
  13. ACTEMRA [Concomitant]
     Active Substance: TOCILIZUMAB
  14. ACTEMRA [Concomitant]
     Active Substance: TOCILIZUMAB
  15. ACTEMRA [Concomitant]
     Active Substance: TOCILIZUMAB
  16. ACTEMRA [Concomitant]
     Active Substance: TOCILIZUMAB
  17. ACTEMRA [Concomitant]
     Active Substance: TOCILIZUMAB
  18. ACTEMRA [Concomitant]
     Active Substance: TOCILIZUMAB
  19. ALENDRONATE SODIUM [Concomitant]
     Active Substance: ALENDRONATE SODIUM
     Indication: Rheumatoid arthritis
  20. PREDNISONE [Concomitant]
     Active Substance: PREDNISONE
     Indication: Systemic lupus erythematosus
  21. PREDNISONE [Concomitant]
     Active Substance: PREDNISONE
     Indication: Synovitis
  22. PREDNISONE [Concomitant]
     Active Substance: PREDNISONE
     Indication: Rheumatoid arthritis
  23. PREDNISONE [Concomitant]
     Active Substance: PREDNISONE
     Indication: Psoriatic arthropathy
  24. PREDNISONE [Concomitant]
     Active Substance: PREDNISONE
     Indication: Pemphigus
  25. PREDNISONE [Concomitant]
     Active Substance: PREDNISONE
     Indication: Inflammation
  26. PREDNISONE [Concomitant]
     Active Substance: PREDNISONE
     Indication: Bursitis
  27. ARAVA [Concomitant]
     Active Substance: LEFLUNOMIDE
     Indication: Rheumatoid arthritis
  28. ARAVA [Concomitant]
     Active Substance: LEFLUNOMIDE
  29. ARAVA [Concomitant]
     Active Substance: LEFLUNOMIDE
  30. ATIVAN [Concomitant]
     Active Substance: LORAZEPAM
  31. CAFFEINE [Concomitant]
     Active Substance: CAFFEINE
  32. LEUCOVORIN CALCIUM [Concomitant]
     Active Substance: LEUCOVORIN CALCIUM
     Indication: Rheumatoid arthritis
  33. LEUCOVORIN CALCIUM [Concomitant]
     Active Substance: LEUCOVORIN CALCIUM
  34. LEUCOVORIN CALCIUM [Concomitant]
     Active Substance: LEUCOVORIN CALCIUM
  35. LEUCOVORIN CALCIUM [Concomitant]
     Active Substance: LEUCOVORIN CALCIUM
  36. LEUCOVORIN CALCIUM [Concomitant]
     Active Substance: LEUCOVORIN CALCIUM
  37. LEUCOVORIN CALCIUM [Concomitant]
     Active Substance: LEUCOVORIN CALCIUM
  38. LEUCOVORIN CALCIUM [Concomitant]
     Active Substance: LEUCOVORIN CALCIUM
  39. LEUCOVORIN CALCIUM [Concomitant]
     Active Substance: LEUCOVORIN CALCIUM
  40. LEUCOVORIN CALCIUM [Concomitant]
     Active Substance: LEUCOVORIN CALCIUM
  41. LEUCOVORIN CALCIUM [Concomitant]
     Active Substance: LEUCOVORIN CALCIUM
  42. CETIRIZINE HYDROCHLORIDE [Concomitant]
     Active Substance: CETIRIZINE HYDROCHLORIDE
     Indication: Rheumatoid arthritis
  43. CETIRIZINE HYDROCHLORIDE [Concomitant]
     Active Substance: CETIRIZINE HYDROCHLORIDE
  44. CETIRIZINE HYDROCHLORIDE [Concomitant]
     Active Substance: CETIRIZINE HYDROCHLORIDE
  45. CETIRIZINE HYDROCHLORIDE [Concomitant]
     Active Substance: CETIRIZINE HYDROCHLORIDE
  46. CETIRIZINE HYDROCHLORIDE [Concomitant]
     Active Substance: CETIRIZINE HYDROCHLORIDE
  47. CETIRIZINE HYDROCHLORIDE [Concomitant]
     Active Substance: CETIRIZINE HYDROCHLORIDE
  48. CETIRIZINE HYDROCHLORIDE [Concomitant]
     Active Substance: CETIRIZINE HYDROCHLORIDE
  49. CETIRIZINE HYDROCHLORIDE [Concomitant]
     Active Substance: CETIRIZINE HYDROCHLORIDE
  50. CETIRIZINE HYDROCHLORIDE [Concomitant]
     Active Substance: CETIRIZINE HYDROCHLORIDE
  51. CETIRIZINE HYDROCHLORIDE [Concomitant]
     Active Substance: CETIRIZINE HYDROCHLORIDE
  52. CETIRIZINE HYDROCHLORIDE [Concomitant]
     Active Substance: CETIRIZINE HYDROCHLORIDE
  53. CETIRIZINE HYDROCHLORIDE [Concomitant]
     Active Substance: CETIRIZINE HYDROCHLORIDE
  54. CHLORHEXIDINE [Concomitant]
     Active Substance: CHLORHEXIDINE
     Indication: Product used for unknown indication
  55. CODEINE [Concomitant]
     Active Substance: CODEINE
  56. CORTISONE ACETATE [Concomitant]
     Active Substance: CORTISONE ACETATE
     Indication: Rheumatoid arthritis
  57. CORTISONE ACETATE [Concomitant]
     Active Substance: CORTISONE ACETATE
  58. CORTISONE ACETATE [Concomitant]
     Active Substance: CORTISONE ACETATE
  59. CORTISONE ACETATE [Concomitant]
     Active Substance: CORTISONE ACETATE
  60. CORTISONE ACETATE [Concomitant]
     Active Substance: CORTISONE ACETATE
  61. CORTISONE ACETATE [Concomitant]
     Active Substance: CORTISONE ACETATE
  62. CORTISONE ACETATE [Concomitant]
     Active Substance: CORTISONE ACETATE
  63. CORTISONE ACETATE [Concomitant]
     Active Substance: CORTISONE ACETATE
  64. CORTISONE ACETATE [Concomitant]
     Active Substance: CORTISONE ACETATE
  65. CORTISONE ACETATE [Concomitant]
     Active Substance: CORTISONE ACETATE
  66. CORTISONE ACETATE [Concomitant]
     Active Substance: CORTISONE ACETATE
  67. DESOXIMETASONE [Concomitant]
     Active Substance: DESOXIMETASONE
     Indication: Rheumatoid arthritis
  68. DESOXIMETASONE [Concomitant]
     Active Substance: DESOXIMETASONE
  69. DESOXIMETASONE [Concomitant]
     Active Substance: DESOXIMETASONE
  70. DESOXIMETASONE [Concomitant]
     Active Substance: DESOXIMETASONE
  71. DESOXIMETASONE [Concomitant]
     Active Substance: DESOXIMETASONE
  72. DESOXIMETASONE [Concomitant]
     Active Substance: DESOXIMETASONE
  73. DICLOFENAC [Concomitant]
     Active Substance: DICLOFENAC
     Indication: Product used for unknown indication
  74. DICLOFENAC [Concomitant]
     Active Substance: DICLOFENAC
  75. DICLOFENAC SODIUM [Concomitant]
     Active Substance: DICLOFENAC SODIUM
     Indication: Rheumatoid arthritis
  76. DICLOFENAC SODIUM [Concomitant]
     Active Substance: DICLOFENAC SODIUM
  77. DICLOFENAC SODIUM [Concomitant]
     Active Substance: DICLOFENAC SODIUM
  78. ENBREL [Concomitant]
     Active Substance: ETANERCEPT
     Indication: Rheumatoid arthritis
  79. ENBREL [Concomitant]
     Active Substance: ETANERCEPT
  80. ENBREL [Concomitant]
     Active Substance: ETANERCEPT
  81. ENBREL [Concomitant]
     Active Substance: ETANERCEPT
  82. ENBREL [Concomitant]
     Active Substance: ETANERCEPT
  83. ENBREL [Concomitant]
     Active Substance: ETANERCEPT
  84. ENBREL [Concomitant]
     Active Substance: ETANERCEPT
  85. ENBREL [Concomitant]
     Active Substance: ETANERCEPT
  86. ENBREL [Concomitant]
     Active Substance: ETANERCEPT
  87. ERGOCALCIFEROL [Concomitant]
     Active Substance: ERGOCALCIFEROL
  88. ESTRADIOL [Concomitant]
     Active Substance: ESTRADIOL
     Indication: Product used for unknown indication
  89. FOSAMAX [Concomitant]
     Active Substance: ALENDRONATE SODIUM
     Indication: Rheumatoid arthritis
  90. FOSAMAX [Concomitant]
     Active Substance: ALENDRONATE SODIUM
  91. FOSAMAX [Concomitant]
     Active Substance: ALENDRONATE SODIUM
  92. FOSAMAX [Concomitant]
     Active Substance: ALENDRONATE SODIUM
  93. FOSAMAX [Concomitant]
     Active Substance: ALENDRONATE SODIUM
  94. FOSAMAX [Concomitant]
     Active Substance: ALENDRONATE SODIUM
  95. FOSAMAX [Concomitant]
     Active Substance: ALENDRONATE SODIUM
  96. FOSAMAX [Concomitant]
     Active Substance: ALENDRONATE SODIUM
  97. FOSAMAX [Concomitant]
     Active Substance: ALENDRONATE SODIUM
  98. FOSAMAX [Concomitant]
     Active Substance: ALENDRONATE SODIUM
  99. FOSAMAX [Concomitant]
     Active Substance: ALENDRONATE SODIUM
  100. FOSAMAX [Concomitant]
     Active Substance: ALENDRONATE SODIUM
  101. GLUCOSAMINE [Concomitant]
     Active Substance: GLUCOSAMINE
  102. HUMIRA [Concomitant]
     Active Substance: ADALIMUMAB
     Indication: Rheumatoid arthritis
     Route: 058
  103. HUMIRA [Concomitant]
     Active Substance: ADALIMUMAB
     Indication: Psoriatic arthropathy
  104. HUMIRA [Concomitant]
     Active Substance: ADALIMUMAB
  105. HUMIRA [Concomitant]
     Active Substance: ADALIMUMAB
  106. HUMIRA [Concomitant]
     Active Substance: ADALIMUMAB
  107. HUMIRA [Concomitant]
     Active Substance: ADALIMUMAB
  108. HUMIRA [Concomitant]
     Active Substance: ADALIMUMAB
  109. HYDROCORTISONE [Concomitant]
     Active Substance: HYDROCORTISONE
     Indication: Rheumatoid arthritis
  110. HYDROCORTISONE [Concomitant]
     Active Substance: HYDROCORTISONE
  111. HYDROCORTISONE [Concomitant]
     Active Substance: HYDROCORTISONE
  112. HYDROCORTISONE [Concomitant]
     Active Substance: HYDROCORTISONE
  113. HYDROCORTISONE [Concomitant]
     Active Substance: HYDROCORTISONE
  114. HYDROCORTISONE [Concomitant]
     Active Substance: HYDROCORTISONE
  115. HYDROXYCHLOROQUINE [Concomitant]
     Active Substance: HYDROXYCHLOROQUINE
     Indication: Rheumatoid arthritis
  116. HYDROXYCHLOROQUINE [Concomitant]
     Active Substance: HYDROXYCHLOROQUINE
  117. HYDROXYCHLOROQUINE [Concomitant]
     Active Substance: HYDROXYCHLOROQUINE
  118. HYDROXYCHLOROQUINE [Concomitant]
     Active Substance: HYDROXYCHLOROQUINE
  119. HYDROXYCHLOROQUINE [Concomitant]
     Active Substance: HYDROXYCHLOROQUINE
  120. HYDROXYCHLOROQUINE SULFATE [Concomitant]
     Active Substance: HYDROXYCHLOROQUINE SULFATE
     Indication: Systemic lupus erythematosus
  121. HYDROXYCHLOROQUINE SULFATE [Concomitant]
     Active Substance: HYDROXYCHLOROQUINE SULFATE
     Indication: Rheumatoid arthritis
  122. HYDROXYCHLOROQUINE SULFATE [Concomitant]
     Active Substance: HYDROXYCHLOROQUINE SULFATE
  123. HYDROXYCHLOROQUINE SULFATE [Concomitant]
     Active Substance: HYDROXYCHLOROQUINE SULFATE
  124. HYDROXYCHLOROQUINE SULFATE [Concomitant]
     Active Substance: HYDROXYCHLOROQUINE SULFATE
  125. HYDROXYCHLOROQUINE SULFATE [Concomitant]
     Active Substance: HYDROXYCHLOROQUINE SULFATE
  126. HYDROXYCHLOROQUINE SULFATE [Concomitant]
     Active Substance: HYDROXYCHLOROQUINE SULFATE
  127. HYDROXYCHLOROQUINE SULFATE [Concomitant]
     Active Substance: HYDROXYCHLOROQUINE SULFATE
  128. HYDROXYCHLOROQUINE SULFATE [Concomitant]
     Active Substance: HYDROXYCHLOROQUINE SULFATE
  129. HYDROXYCHLOROQUINE SULFATE [Concomitant]
     Active Substance: HYDROXYCHLOROQUINE SULFATE
  130. HYDROXYCHLOROQUINE SULFATE [Concomitant]
     Active Substance: HYDROXYCHLOROQUINE SULFATE
  131. HYDROXYCHLOROQUINE SULFATE [Concomitant]
     Active Substance: HYDROXYCHLOROQUINE SULFATE
  132. HYDROXYCHLOROQUINE SULFATE [Concomitant]
     Active Substance: HYDROXYCHLOROQUINE SULFATE
  133. HYDROXYCHLOROQUINE SULFATE [Concomitant]
     Active Substance: HYDROXYCHLOROQUINE SULFATE
  134. HYDROXYCHLOROQUINE SULFATE [Concomitant]
     Active Substance: HYDROXYCHLOROQUINE SULFATE
  135. HYDROXYCHLOROQUINE SULFATE [Concomitant]
     Active Substance: HYDROXYCHLOROQUINE SULFATE
  136. HYDROXYCHLOROQUINE SULFATE [Concomitant]
     Active Substance: HYDROXYCHLOROQUINE SULFATE
  137. HYDROXYCHLOROQUINE SULFATE [Concomitant]
     Active Substance: HYDROXYCHLOROQUINE SULFATE
  138. IBUPROFEN [Concomitant]
     Active Substance: IBUPROFEN
  139. LANSOPRAZOLE [Concomitant]
     Active Substance: LANSOPRAZOLE
     Dosage: DELAYED RELEASE
  140. LEFLUNOMIDE [Concomitant]
     Active Substance: LEFLUNOMIDE
     Indication: Rheumatoid arthritis
  141. LEFLUNOMIDE [Concomitant]
     Active Substance: LEFLUNOMIDE
  142. LEFLUNOMIDE [Concomitant]
     Active Substance: LEFLUNOMIDE
  143. LEFLUNOMIDE [Concomitant]
     Active Substance: LEFLUNOMIDE
  144. LEFLUNOMIDE [Concomitant]
     Active Substance: LEFLUNOMIDE
  145. LEFLUNOMIDE [Concomitant]
     Active Substance: LEFLUNOMIDE
  146. METHOTREXATE [Concomitant]
     Active Substance: METHOTREXATE
     Indication: Rheumatoid arthritis
  147. METHOTREXATE [Concomitant]
     Active Substance: METHOTREXATE
  148. METHOTREXATE [Concomitant]
     Active Substance: METHOTREXATE
  149. METHOTREXATE [Concomitant]
     Active Substance: METHOTREXATE
  150. METHOTREXATE [Concomitant]
     Active Substance: METHOTREXATE
  151. METHOTREXATE [Concomitant]
     Active Substance: METHOTREXATE
  152. METHOTREXATE [Concomitant]
     Active Substance: METHOTREXATE
  153. METHOTREXATE [Concomitant]
     Active Substance: METHOTREXATE
  154. METHOTREXATE [Concomitant]
     Active Substance: METHOTREXATE
  155. METHOTREXATE [Concomitant]
     Active Substance: METHOTREXATE
  156. METHOTREXATE [Concomitant]
     Active Substance: METHOTREXATE
  157. METHOTREXATE [Concomitant]
     Active Substance: METHOTREXATE
  158. METHOTREXATE [Concomitant]
     Active Substance: METHOTREXATE
  159. METHOTREXATE [Concomitant]
     Active Substance: METHOTREXATE
  160. METHOTREXATE [Concomitant]
     Active Substance: METHOTREXATE
  161. METHOTREXATE [Concomitant]
     Active Substance: METHOTREXATE
  162. METHOTREXATE [Concomitant]
     Active Substance: METHOTREXATE
  163. METHOTREXATE [Concomitant]
     Active Substance: METHOTREXATE
  164. METHOTREXATE [Concomitant]
     Active Substance: METHOTREXATE
  165. METHOTREXATE [Concomitant]
     Active Substance: METHOTREXATE
  166. METHOTREXATE [Concomitant]
     Active Substance: METHOTREXATE
  167. METHOTREXATE [Concomitant]
     Active Substance: METHOTREXATE
  168. METHOTREXATE [Concomitant]
     Active Substance: METHOTREXATE
  169. METHOTREXATE [Concomitant]
     Active Substance: METHOTREXATE
  170. OXYCODONE [Concomitant]
     Active Substance: OXYCODONE
     Indication: Product used for unknown indication
  171. OXYCODONE [Concomitant]
     Active Substance: OXYCODONE
  172. OXYCODONE HYDROCHLORIDE [Concomitant]
     Active Substance: OXYCODONE HYDROCHLORIDE
     Indication: Product used for unknown indication
  173. OXYCODONE TEREPHTHALATE [Concomitant]
     Active Substance: OXYCODONE TEREPHTHALATE
     Indication: Product used for unknown indication
  174. PANTOPRAZOLE [Concomitant]
     Active Substance: PANTOPRAZOLE
  175. PANTOPRAZOLE SODIUM [Concomitant]
     Active Substance: PANTOPRAZOLE SODIUM
  176. PHTHALYLSULFATHIAZOLE [Concomitant]
     Active Substance: PHTHALYLSULFATHIAZOLE
     Indication: Rheumatoid arthritis
  177. PHTHALYLSULFATHIAZOLE [Concomitant]
     Active Substance: PHTHALYLSULFATHIAZOLE
  178. PHTHALYLSULFATHIAZOLE [Concomitant]
     Active Substance: PHTHALYLSULFATHIAZOLE
  179. PREDNISONE [Concomitant]
     Active Substance: PREDNISONE
     Indication: Systemic lupus erythematosus
  180. PREDNISONE [Concomitant]
     Active Substance: PREDNISONE
     Indication: Synovitis
  181. PREDNISONE [Concomitant]
     Active Substance: PREDNISONE
     Indication: Rheumatoid arthritis
  182. PREDNISONE [Concomitant]
     Active Substance: PREDNISONE
     Indication: Psoriatic arthropathy
  183. PREDNISONE [Concomitant]
     Active Substance: PREDNISONE
     Indication: Arthritis
  184. PREDNISONE [Concomitant]
     Active Substance: PREDNISONE
  185. PREDNISONE [Concomitant]
     Active Substance: PREDNISONE
  186. PREDNISONE [Concomitant]
     Active Substance: PREDNISONE
  187. PREDNISONE [Concomitant]
     Active Substance: PREDNISONE
  188. PREDNISONE [Concomitant]
     Active Substance: PREDNISONE
  189. PREDNISONE [Concomitant]
     Active Substance: PREDNISONE
  190. PREDNISONE [Concomitant]
     Active Substance: PREDNISONE
  191. PREDNISONE [Concomitant]
     Active Substance: PREDNISONE
  192. PREDNISONE [Concomitant]
     Active Substance: PREDNISONE
  193. PREDNISONE [Concomitant]
     Active Substance: PREDNISONE
  194. PREDNISONE [Concomitant]
     Active Substance: PREDNISONE
  195. PREDNISONE [Concomitant]
     Active Substance: PREDNISONE
  196. PREDNISONE [Concomitant]
     Active Substance: PREDNISONE
  197. PSEUDOEPHEDRINE HYDROCHLORIDE [Concomitant]
     Active Substance: PSEUDOEPHEDRINE HYDROCHLORIDE
     Indication: Rheumatoid arthritis
  198. PSEUDOEPHEDRINE HYDROCHLORIDE [Concomitant]
     Active Substance: PSEUDOEPHEDRINE HYDROCHLORIDE
  199. PSEUDOEPHEDRINE HYDROCHLORIDE [Concomitant]
     Active Substance: PSEUDOEPHEDRINE HYDROCHLORIDE
  200. PSEUDOEPHEDRINE HYDROCHLORIDE [Concomitant]
     Active Substance: PSEUDOEPHEDRINE HYDROCHLORIDE
  201. CETIRIZINE HYDROCHLORIDE\PSEUDOEPHEDRINE HYDROCHLORIDE [Concomitant]
     Active Substance: CETIRIZINE HYDROCHLORIDE\PSEUDOEPHEDRINE HYDROCHLORIDE
     Indication: Rheumatoid arthritis
  202. CETIRIZINE HYDROCHLORIDE\PSEUDOEPHEDRINE HYDROCHLORIDE [Concomitant]
     Active Substance: CETIRIZINE HYDROCHLORIDE\PSEUDOEPHEDRINE HYDROCHLORIDE
     Dosage: EXTENDED RELEASE
  203. REMICADE [Concomitant]
     Active Substance: INFLIXIMAB
     Indication: Rheumatoid arthritis
  204. REMICADE [Concomitant]
     Active Substance: INFLIXIMAB
  205. REMICADE [Concomitant]
     Active Substance: INFLIXIMAB
  206. REMICADE [Concomitant]
     Active Substance: INFLIXIMAB
     Dosage: POWDER FOR SOLUTION FOR INTRAVENOUS
  207. RITUXIMAB [Concomitant]
     Active Substance: RITUXIMAB
     Indication: Rheumatoid arthritis
  208. SULFASALAZINE [Concomitant]
     Active Substance: SULFASALAZINE
  209. FISH OIL [Concomitant]
     Active Substance: FISH OIL
  210. SIMPONI [Concomitant]
     Active Substance: GOLIMUMAB
     Indication: Rheumatoid arthritis
  211. SIMPONI [Concomitant]
     Active Substance: GOLIMUMAB
  212. SIMPONI [Concomitant]
     Active Substance: GOLIMUMAB
  213. SIMPONI [Concomitant]
     Active Substance: GOLIMUMAB
     Route: 058
  214. SIMPONI [Concomitant]
     Active Substance: GOLIMUMAB
  215. SIMPONI [Concomitant]
     Active Substance: GOLIMUMAB
  216. SIMPONI [Concomitant]
     Active Substance: GOLIMUMAB
  217. STELARA [Concomitant]
     Active Substance: USTEKINUMAB
     Indication: Rheumatoid arthritis
     Route: 058
  218. STELARA [Concomitant]
     Active Substance: USTEKINUMAB
  219. STELARA [Concomitant]
     Active Substance: USTEKINUMAB
  220. STELARA [Concomitant]
     Active Substance: USTEKINUMAB
  221. STELARA [Concomitant]
     Active Substance: USTEKINUMAB
  222. STELARA [Concomitant]
     Active Substance: USTEKINUMAB
  223. SULFAMETHOXAZOLE [Concomitant]
     Active Substance: SULFAMETHOXAZOLE
     Indication: Product used for unknown indication
  224. SULFAMETHOXAZOLE [Concomitant]
     Active Substance: SULFAMETHOXAZOLE
  225. SULFAMETHOXAZOLE\TRIMETHOPRIM [Concomitant]
     Active Substance: SULFAMETHOXAZOLE\TRIMETHOPRIM
     Indication: Product used for unknown indication
  226. SULFASALAZINE [Concomitant]
     Active Substance: SULFASALAZINE
     Indication: Rheumatoid arthritis
  227. SULFASALAZINE [Concomitant]
     Active Substance: SULFASALAZINE
  228. SULFASALAZINE [Concomitant]
     Active Substance: SULFASALAZINE
  229. SULFASALAZINE [Concomitant]
     Active Substance: SULFASALAZINE
  230. SULFASALAZINE [Concomitant]
     Active Substance: SULFASALAZINE
  231. SULFASALAZINE [Concomitant]
     Active Substance: SULFASALAZINE
  232. SULFASALAZINE [Concomitant]
     Active Substance: SULFASALAZINE
  233. SULFASALAZINE [Concomitant]
     Active Substance: SULFASALAZINE
  234. SULFASALAZINE [Concomitant]
     Active Substance: SULFASALAZINE
  235. SULFASALAZINE [Concomitant]
     Active Substance: SULFASALAZINE
  236. SULFASALAZINE [Concomitant]
     Active Substance: SULFASALAZINE
  237. SULFASALAZINE [Concomitant]
     Active Substance: SULFASALAZINE
  238. SULFASALAZINE [Concomitant]
     Active Substance: SULFASALAZINE
  239. SULFASALAZINE [Concomitant]
     Active Substance: SULFASALAZINE
  240. SULFASALAZINE [Concomitant]
     Active Substance: SULFASALAZINE
  241. SULFASALAZINE [Concomitant]
     Active Substance: SULFASALAZINE
  242. SULFASALAZINE [Concomitant]
     Active Substance: SULFASALAZINE
  243. SULFASALAZINE [Concomitant]
     Active Substance: SULFASALAZINE
  244. TYLENOL [Concomitant]
     Active Substance: ACETAMINOPHEN
  245. VITAMIN C [Concomitant]
     Active Substance: ASCORBIC ACID
  246. XELJANZ [Concomitant]
     Active Substance: TOFACITINIB CITRATE
     Indication: Rheumatoid arthritis
  247. XELJANZ [Concomitant]
     Active Substance: TOFACITINIB CITRATE
     Indication: Psoriatic arthropathy
  248. XELJANZ [Concomitant]
     Active Substance: TOFACITINIB CITRATE
  249. XELJANZ [Concomitant]
     Active Substance: TOFACITINIB CITRATE
  250. XELJANZ [Concomitant]
     Active Substance: TOFACITINIB CITRATE
  251. XELJANZ [Concomitant]
     Active Substance: TOFACITINIB CITRATE
  252. XELJANZ [Concomitant]
     Active Substance: TOFACITINIB CITRATE
  253. XELJANZ [Concomitant]
     Active Substance: TOFACITINIB CITRATE
  254. XELJANZ [Concomitant]
     Active Substance: TOFACITINIB CITRATE
  255. XELJANZ [Concomitant]
     Active Substance: TOFACITINIB CITRATE
  256. XELJANZ [Concomitant]
     Active Substance: TOFACITINIB CITRATE
  257. XELJANZ [Concomitant]
     Active Substance: TOFACITINIB CITRATE
  258. XELJANZ [Concomitant]
     Active Substance: TOFACITINIB CITRATE
  259. XELJANZ [Concomitant]
     Active Substance: TOFACITINIB CITRATE
  260. XELJANZ [Concomitant]
     Active Substance: TOFACITINIB CITRATE
  261. XELJANZ [Concomitant]
     Active Substance: TOFACITINIB CITRATE
  262. PANTOPRAZOLE SODIUM ANHYDROUS [Concomitant]
     Active Substance: PANTOPRAZOLE SODIUM ANHYDROUS
     Indication: Product used for unknown indication
  263. TYLENOL WITH CODEINE [Concomitant]
     Active Substance: ACETAMINOPHEN\CODEINE PHOSPHATE
     Indication: Product used for unknown indication
  264. CIMZIA [Concomitant]
     Active Substance: CERTOLIZUMAB PEGOL
     Indication: Rheumatoid arthritis
  265. CIMZIA [Concomitant]
     Active Substance: CERTOLIZUMAB PEGOL
  266. CIMZIA [Concomitant]
     Active Substance: CERTOLIZUMAB PEGOL

REACTIONS (16)
  - Asthma [Unknown]
  - Autoimmune disorder [Unknown]
  - Chest pain [Unknown]
  - Condition aggravated [Unknown]
  - Contusion [Unknown]
  - Deep vein thrombosis postoperative [Unknown]
  - Drug hypersensitivity [Unknown]
  - Gait inability [Unknown]
  - Lower limb fracture [Unknown]
  - Off label use [Unknown]
  - Road traffic accident [Unknown]
  - Therapy non-responder [Unknown]
  - Treatment failure [Unknown]
  - Urticaria [Unknown]
  - Adverse event [Unknown]
  - Hospitalisation [Unknown]
